FAERS Safety Report 15250759 (Version 1)
Quarter: 2018Q3

REPORT INFORMATION
  Report Type: Spontaneous
  Country: US (occurrence: US)
  Receive Date: 20180716
  Receipt Date: 20180716
  Transmission Date: 20181010
  Serious: Yes (Other)
  Sender: FDA-Public Use
  Company Number: None

PATIENT
  Age: 50 Year
  Sex: Female
  Weight: 43.2 kg

DRUGS (3)
  1. FEMARA [Suspect]
     Active Substance: LETROZOLE
     Indication: BREAST CANCER
     Route: 048
     Dates: start: 20180330, end: 20180716
  2. ZOLADEX [Concomitant]
     Active Substance: GOSERELIN ACETATE
  3. KISQALI [Suspect]
     Active Substance: RIBOCICLIB
     Indication: BREAST CANCER
     Route: 048
     Dates: start: 20180330, end: 20180716

REACTIONS (1)
  - Disease progression [None]
